FAERS Safety Report 21984316 (Version 1)
Quarter: 2023Q1

REPORT INFORMATION
  Report Type: Spontaneous
  Country: None (occurrence: US)
  Receive Date: 20230213
  Receipt Date: 20230213
  Transmission Date: 20230418
  Serious: Yes (Other)
  Sender: FDA-Public Use
  Company Number: US-Bio Products Laboratory Ltd-2137832

PATIENT
  Age: 67 Year
  Sex: Male

DRUGS (4)
  1. HUMAN IMMUNOGLOBULIN G [Suspect]
     Active Substance: HUMAN IMMUNOGLOBULIN G
     Indication: Polyomavirus-associated nephropathy
  2. CIDOFOVIR [Concomitant]
     Active Substance: CIDOFOVIR
  3. SIROLIMUS [Concomitant]
     Active Substance: SIROLIMUS
  4. Posoleucel [Concomitant]

REACTIONS (3)
  - Haemolytic anaemia [Unknown]
  - Drug ineffective for unapproved indication [Unknown]
  - Off label use [Unknown]
